FAERS Safety Report 13412936 (Version 1)
Quarter: 2017Q2

REPORT INFORMATION
  Report Type: Spontaneous
  Country: US (occurrence: US)
  Receive Date: 20170407
  Receipt Date: 20170407
  Transmission Date: 20170830
  Serious: No
  Sender: FDA-Public Use
  Company Number: US-VERTEX PHARMACEUTICALS-2017-001896

PATIENT
  Sex: Male

DRUGS (10)
  1. PULMOZYME [Concomitant]
     Active Substance: DORNASE ALFA
  2. PROAIR HFA [Concomitant]
     Active Substance: ALBUTEROL SULFATE
  3. ORKAMBI [Suspect]
     Active Substance: IVACAFTOR\LUMACAFTOR
     Indication: CYSTIC FIBROSIS
     Dosage: UNK, BID
     Route: 048
     Dates: start: 201509
  4. SYMBICORT [Concomitant]
     Active Substance: BUDESONIDE\FORMOTEROL FUMARATE DIHYDRATE
  5. FLUCONAZOLE. [Concomitant]
     Active Substance: FLUCONAZOLE
  6. CREON [Concomitant]
     Active Substance: PANCRELIPASE AMYLASE\PANCRELIPASE LIPASE\PANCRELIPASE PROTEASE
  7. HUMALOG [Concomitant]
     Active Substance: INSULIN LISPRO
  8. RANITIDINE. [Concomitant]
     Active Substance: RANITIDINE
  9. EMGEL [Concomitant]
     Active Substance: ERYTHROMYCIN
  10. TOBI [Concomitant]
     Active Substance: TOBRAMYCIN

REACTIONS (1)
  - Infective pulmonary exacerbation of cystic fibrosis [Not Recovered/Not Resolved]

NARRATIVE: CASE EVENT DATE: 2017
